FAERS Safety Report 6767743-6 (Version None)
Quarter: 2010Q2

REPORT INFORMATION
  Report Type: 
  Country: None (occurrence: None)
  Receive Date: 20100614
  Receipt Date: 20100607
  Transmission Date: 20101027
  Serious: Yes (Death, Other)
  Sender: FDA-Public Use
  Company Number: TR-ROCHE-707954

PATIENT
  Age: 41 Year

DRUGS (2)
  1. GANCICLOVIR SODIUM [Suspect]
     Indication: DRUG USE FOR UNKNOWN INDICATION
     Route: 065
  2. FOSCARNET [Suspect]
     Indication: DRUG USE FOR UNKNOWN INDICATION
     Route: 065

REACTIONS (4)
  - CYTOMEGALOVIRUS CHORIORETINITIS [None]
  - DEATH [None]
  - DRUG RESISTANCE [None]
  - ENCEPHALITIS [None]
